FAERS Safety Report 8700533 (Version 3)
Quarter: 2013Q4

REPORT INFORMATION
  Report Type: Spontaneous
  Country: US (occurrence: US)
  Receive Date: 20120802
  Receipt Date: 20131101
  Transmission Date: 20140711
  Serious: No
  Sender: FDA-Public Use
  Company Number: US-009507513-1208USA000994

PATIENT
  Age: 55 Year
  Sex: Female
  Weight: 63.49 kg

DRUGS (3)
  1. CLARITIN-D-24 [Suspect]
     Indication: HYPERSENSITIVITY
     Dosage: 10 MG, ONCE
     Route: 048
     Dates: start: 20120510, end: 20120510
  2. LIPITOR [Suspect]
     Indication: BLOOD CHOLESTEROL
     Dosage: UNK, UNKNOWN
  3. VITAMINS (UNSPECIFIED) [Suspect]
     Indication: PRODUCT USED FOR UNKNOWN INDICATION
     Dosage: UNK, UNKNOWN

REACTIONS (1)
  - Feeling jittery [Recovered/Resolved]
